FAERS Safety Report 8471030-8 (Version None)
Quarter: 2012Q2

REPORT INFORMATION
  Report Type: 
  Country: None (occurrence: None)
  Receive Date: 20120323
  Receipt Date: 20111206
  Transmission Date: 20120825
  Serious: Yes (Other)
  Sender: FDA-Public Use
  Company Number: 163-21880-11110719

PATIENT
  Age: 56 Year
  Sex: Female
  Weight: 66.31 kg

DRUGS (8)
  1. LORAZEPAM [Concomitant]
  2. POTASSIUM CHLORIDE [Concomitant]
  3. LENALIDOMIDE [Suspect]
     Indication: MYELODYSPLASTIC SYNDROME
     Dosage: 10 MG, QD, PO; 5 MG, 1 IN 1 D, PO; 5 MG EVERY OTHER DAY, PO
     Route: 048
     Dates: start: 20110811, end: 20110906
  4. LENALIDOMIDE [Suspect]
     Indication: MYELODYSPLASTIC SYNDROME
     Dosage: 10 MG, QD, PO; 5 MG, 1 IN 1 D, PO; 5 MG EVERY OTHER DAY, PO
     Route: 048
     Dates: start: 20110101
  5. LENALIDOMIDE [Suspect]
     Indication: MYELODYSPLASTIC SYNDROME
     Dosage: 10 MG, QD, PO; 5 MG, 1 IN 1 D, PO; 5 MG EVERY OTHER DAY, PO
     Route: 048
     Dates: start: 20111027, end: 20111206
  6. NEXIUM [Concomitant]
  7. MAGNESIUM CHLORIDE (MAGNESIUM CHLORIDE ANHYDROUS) [Concomitant]
  8. CRESTOR [Concomitant]

REACTIONS (4)
  - NEUTROPENIA [None]
  - WHITE BLOOD CELL COUNT DECREASED [None]
  - RED BLOOD CELL COUNT DECREASED [None]
  - HAEMOGLOBIN DECREASED [None]
